FAERS Safety Report 6680062-1 (Version None)
Quarter: 2010Q2

REPORT INFORMATION
  Report Type: 
  Country: None (occurrence: None)
  Receive Date: 20100413
  Receipt Date: 20100412
  Transmission Date: 20101027
  Serious: Yes (Hospitalization)
  Sender: FDA-Public Use
  Company Number: US-ROXANE LABORATORIES, INC.-2010-RO-00181RO

PATIENT
  Sex: Male
  Weight: 78 kg

DRUGS (20)
  1. PREDNISOLONE [Suspect]
     Indication: DIFFUSE LARGE B-CELL LYMPHOMA
     Dosage: 100 MG
     Route: 048
     Dates: start: 20070727, end: 20071115
  2. ENZASTAURIN [Suspect]
     Indication: DIFFUSE LARGE B-CELL LYMPHOMA
     Dosage: 1125 MG
     Route: 048
     Dates: start: 20070728, end: 20070728
  3. ENZASTAURIN [Suspect]
     Dosage: 500 MG
     Route: 048
     Dates: start: 20070729
  4. RITUXIMAB [Suspect]
     Indication: DIFFUSE LARGE B-CELL LYMPHOMA
     Route: 042
     Dates: start: 20070727, end: 20071115
  5. CYCLOPHOSPHAMIDE [Suspect]
     Indication: DIFFUSE LARGE B-CELL LYMPHOMA
     Route: 042
     Dates: start: 20070727, end: 20071115
  6. DOXORUBICIN HCL [Suspect]
     Indication: DIFFUSE LARGE B-CELL LYMPHOMA
     Route: 042
     Dates: start: 20070727, end: 20071115
  7. VINCRISTINE [Suspect]
     Indication: DIFFUSE LARGE B-CELL LYMPHOMA
     Route: 042
     Dates: start: 20070727, end: 20071115
  8. ATENOLOL [Concomitant]
     Indication: HYPERTENSION
     Dates: start: 20020101, end: 20100112
  9. QUINAPRIL [Concomitant]
     Indication: HYPERTENSION
     Dates: start: 20020101
  10. NEXIUM [Concomitant]
     Dates: start: 20020101
  11. DETROL [Concomitant]
     Dates: start: 20020101
  12. ASTELIN [Concomitant]
     Dates: start: 20020101
  13. VITAMIN E [Concomitant]
     Dates: start: 20020101
  14. CENTRUM SILVER [Concomitant]
     Dates: start: 20020101
  15. HYDROCODONE BITARTRATE [Concomitant]
     Dates: start: 20070701
  16. DILAUDID [Concomitant]
     Dates: start: 20070724
  17. ALLOPURINOL [Concomitant]
     Dates: start: 20070727
  18. KEFLEX [Concomitant]
     Dates: start: 20070810
  19. LISINOPRIL [Concomitant]
     Indication: HYPERTENSION
  20. TRAMADOL HCL [Concomitant]

REACTIONS (14)
  - ARRHYTHMIA [None]
  - ATRIOVENTRICULAR BLOCK [None]
  - BACK PAIN [None]
  - CARDIAC DISORDER [None]
  - CHRONIC OBSTRUCTIVE PULMONARY DISEASE [None]
  - DEEP VEIN THROMBOSIS [None]
  - FLANK PAIN [None]
  - HAEMOPTYSIS [None]
  - HYPERTENSION [None]
  - INTERSTITIAL LUNG DISEASE [None]
  - OEDEMA [None]
  - PLEURAL EFFUSION [None]
  - PNEUMONIA [None]
  - SYNCOPE [None]
